FAERS Safety Report 11870792 (Version 1)
Quarter: 2015Q4

REPORT INFORMATION
  Report Type: Spontaneous
  Country: US (occurrence: None)
  Receive Date: 20151224
  Receipt Date: 20151224
  Transmission Date: 20160305
  Serious: Yes (Hospitalization)
  Sender: FDA-Public Use
  Company Number: None

PATIENT
  Age: 28 Year
  Sex: Female

DRUGS (5)
  1. PROPOFOL. [Suspect]
     Active Substance: PROPOFOL
     Indication: SEDATION
     Dosage: 15 MCG/KG/MIN; - 2.8 MG/MIN
     Route: 042
     Dates: start: 20150623, end: 20150624
  2. HEPARIN [Concomitant]
     Active Substance: HEPARIN SODIUM
  3. FAMOTIDINE. [Concomitant]
     Active Substance: FAMOTIDINE
  4. LORAZAPAM [Concomitant]
     Active Substance: LORAZEPAM
  5. ENOXAPARIN [Concomitant]
     Active Substance: ENOXAPARIN

REACTIONS (10)
  - Procedural hypotension [None]
  - Oliguria [None]
  - Lactic acidosis [None]
  - Blood creatinine increased [None]
  - Myocardial strain [None]
  - Propofol infusion syndrome [None]
  - Vena cava embolism [None]
  - Pulmonary embolism [None]
  - Multi-organ failure [None]
  - Haemoglobin decreased [None]

NARRATIVE: CASE EVENT DATE: 20150624
